FAERS Safety Report 18958137 (Version 1)
Quarter: 2021Q1

REPORT INFORMATION
  Report Type: Spontaneous
  Country: JP (occurrence: JP)
  Receive Date: 20210302
  Receipt Date: 20210302
  Transmission Date: 20210420
  Serious: Yes (Other)
  Sender: FDA-Public Use
  Company Number: JP-GLAXOSMITHKLINE-JP2021053590

PATIENT
  Sex: Male

DRUGS (3)
  1. SILODOSIN. [Concomitant]
     Active Substance: SILODOSIN
     Dosage: UNK, QD
  2. AVOLVE [Suspect]
     Active Substance: DUTASTERIDE
     Indication: BENIGN PROSTATIC HYPERPLASIA
     Dosage: UNK
     Route: 048
  3. AVOLVE [Suspect]
     Active Substance: DUTASTERIDE
     Dosage: UNK, ONCE EVERY 3 DAYS OR ONCE EVERY 2 DAYS
     Route: 048

REACTIONS (5)
  - Nasal crusting [Unknown]
  - Urinary retention [Unknown]
  - Palmoplantar keratoderma [Unknown]
  - Nasal dryness [Unknown]
  - Intentional product use issue [Unknown]
